FAERS Safety Report 15576381 (Version 1)
Quarter: 2018Q4

REPORT INFORMATION
  Report Type: Spontaneous
  Country: US (occurrence: US)
  Receive Date: 20181101
  Receipt Date: 20181101
  Transmission Date: 20190205
  Serious: No
  Sender: FDA-Public Use
  Company Number: PHEH2018US046224

PATIENT
  Sex: Female

DRUGS (2)
  1. FEMARA [Suspect]
     Active Substance: LETROZOLE
     Indication: BREAST CANCER
     Dosage: UNK, QD
     Route: 048
  2. IBRANCE [Suspect]
     Active Substance: PALBOCICLIB
     Indication: BREAST CANCER
     Dosage: 125 MG, UNK (FOR 21 DAYS ON AND 7 DAYS OFF)
     Route: 065
     Dates: start: 20180612

REACTIONS (2)
  - Diarrhoea [Unknown]
  - Mucosal inflammation [Unknown]
